FAERS Safety Report 5828572-0 (Version None)
Quarter: 2008Q3

REPORT INFORMATION
  Report Type: 
  Country: None (occurrence: None)
  Receive Date: 20080729
  Receipt Date: 20080729
  Transmission Date: 20090109
  Serious: Yes (Other)
  Sender: FDA-Public Use
  Company Number: None

PATIENT
  Sex: Male

DRUGS (1)
  1. XOLAIR [Suspect]
     Indication: ASTHMA
     Dosage: 375MG EVERY 2 WEEKS SQ (ONE DOSE)
     Route: 058
     Dates: start: 20080625, end: 20080625

REACTIONS (3)
  - FEELING HOT [None]
  - HOT FLUSH [None]
  - NAUSEA [None]
